FAERS Safety Report 20490591 (Version 1)
Quarter: 2022Q1

REPORT INFORMATION
  Report Type: Spontaneous
  Country: US (occurrence: US)
  Receive Date: 20220218
  Receipt Date: 20220218
  Transmission Date: 20220423
  Serious: Yes (Death, Hospitalization, Other)
  Sender: FDA-Public Use
  Company Number: US-PFIZER INC-202200250777

PATIENT
  Age: 55 Year
  Sex: Female

DRUGS (6)
  1. GLIPIZIDE [Suspect]
     Active Substance: GLIPIZIDE
     Dosage: UNK(INGESTION)
     Route: 048
  2. DILTIAZEM HYDROCHLORIDE [Suspect]
     Active Substance: DILTIAZEM HYDROCHLORIDE
     Dosage: UNK(INGESTION)
     Route: 048
  3. SOTALOL HYDROCHLORIDE [Suspect]
     Active Substance: SOTALOL HYDROCHLORIDE
     Dosage: UNK(INGESTION)
     Route: 048
  4. CLOPIDOGREL [Suspect]
     Active Substance: CLOPIDOGREL BISULFATE
     Dosage: UNK(INGESTION)
     Route: 048
  5. ASPIRIN [Suspect]
     Active Substance: ASPIRIN
     Dosage: UNK(INGESTION)
     Route: 048
  6. ANASTROZOLE [Suspect]
     Active Substance: ANASTROZOLE
     Dosage: UNK(INGESTION)
     Route: 048

REACTIONS (1)
  - Completed suicide [Fatal]

NARRATIVE: CASE EVENT DATE: 20200101
